FAERS Safety Report 19075599 (Version 1)
Quarter: 2021Q1

REPORT INFORMATION
  Report Type: Spontaneous
  Country: US (occurrence: US)
  Receive Date: 20210331
  Receipt Date: 20210331
  Transmission Date: 20210420
  Serious: Yes (Other)
  Sender: FDA-Public Use
  Company Number: US-HIKMA PHARMACEUTICALS USA INC.-US-H14001-21-01359

PATIENT
  Sex: Female

DRUGS (2)
  1. PREDNISONE. [Suspect]
     Active Substance: PREDNISONE
     Indication: BRONCHITIS
     Dosage: 20 MG IN THE MORNING AND 5MG IN THE EVENING
     Route: 048
     Dates: start: 20170615, end: 20210317
  2. BENADRYL [Concomitant]
     Active Substance: DIPHENHYDRAMINE HYDROCHLORIDE
     Indication: PRODUCT USED FOR UNKNOWN INDICATION
     Route: 065
     Dates: start: 20210317

REACTIONS (7)
  - Gastrointestinal disorder [Recovered/Resolved]
  - Euphoric mood [Recovered/Resolved]
  - Drug hypersensitivity [Recovered/Resolved]
  - Neurological symptom [Recovered/Resolved]
  - Mastocytosis [Recovered/Resolved]
  - Respiratory symptom [Recovered/Resolved]
  - Dizziness [Recovered/Resolved]
